FAERS Safety Report 9236637 (Version 2)
Quarter: 2013Q2

REPORT INFORMATION
  Report Type: Spontaneous
  Country: US (occurrence: US)
  Receive Date: 20130417
  Receipt Date: 20130607
  Transmission Date: 20140414
  Serious: Yes (Death)
  Sender: FDA-Public Use
  Company Number: US-ROCHE-1215250

PATIENT
  Age: 70 Year
  Sex: Female
  Weight: 72.64 kg

DRUGS (6)
  1. XOLAIR [Suspect]
     Indication: PRODUCT USED FOR UNKNOWN INDICATION
     Route: 065
  2. DILTIAZEM [Concomitant]
  3. PREDNISONE [Concomitant]
     Indication: CHRONIC OBSTRUCTIVE PULMONARY DISEASE
     Route: 065
  4. DALIRESP [Concomitant]
  5. SYNTHROID [Concomitant]
  6. SINGULAIR [Concomitant]

REACTIONS (1)
  - Death [Fatal]
